FAERS Safety Report 7508876-6 (Version None)
Quarter: 2011Q2

REPORT INFORMATION
  Report Type: 
  Country: None (occurrence: None)
  Receive Date: 20110527
  Receipt Date: 20110516
  Transmission Date: 20111010
  Serious: Yes (Death)
  Sender: FDA-Public Use
  Company Number: US-BRISTOL-MYERS SQUIBB COMPANY-15747629

PATIENT
  Age: 37 Year
  Sex: Male

DRUGS (3)
  1. ETOPOSIDE [Suspect]
     Indication: TESTIS CANCER
  2. BLENOXANE [Suspect]
     Indication: TESTIS CANCER
     Dosage: SINGLE DOSE
  3. CISPLATIN [Suspect]
     Indication: TESTIS CANCER
     Dosage: TOTAL OF 3 DOSES

REACTIONS (2)
  - CORONARY ARTERY THROMBOSIS [None]
  - SUDDEN CARDIAC DEATH [None]
